FAERS Safety Report 13416424 (Version 2)
Quarter: 2017Q3

REPORT INFORMATION
  Report Type: Spontaneous
  Country: CA (occurrence: CA)
  Receive Date: 20170406
  Receipt Date: 20170905
  Transmission Date: 20171127
  Serious: Yes (Other)
  Sender: FDA-Public Use
  Company Number: CA-BAYER-2017-061646

PATIENT
  Age: 30 Year
  Sex: Male

DRUGS (2)
  1. KOGENATE [Suspect]
     Active Substance: ANTIHEMOPHILIC FACTOR, HUMAN RECOMBINANT
     Dosage: TREATS ON DEMAND - TIPICALLY 2000 IN THE MORNING AND 1000 AT NIGHT
     Dates: end: 201701
  2. KOVALTRY [Suspect]
     Active Substance: ANTIHEMOPHILIC FACTOR, HUMAN RECOMBINANT
     Indication: FACTOR VIII DEFICIENCY
     Dosage: TREATS ON DEMAND - TIPICALLY 2000 IN THE MORNING AND 1000 AT NIGH (TOTAL OF 10 TREATMENT IN JANUARY)
     Route: 042
     Dates: start: 20170112

REACTIONS (3)
  - Drug ineffective [None]
  - Traumatic haemorrhage [None]
  - Haemarthrosis [None]

NARRATIVE: CASE EVENT DATE: 2017
